FAERS Safety Report 4792722-8 (Version None)
Quarter: 2005Q4

REPORT INFORMATION
  Report Type: 
  Country: None (occurrence: None)
  Receive Date: 20051010
  Receipt Date: 20050929
  Transmission Date: 20060501
  Serious: Yes (Hospitalization)
  Sender: FDA-Public Use
  Company Number: US-MERCK-0510USA00374

PATIENT
  Age: 46 Year
  Sex: Male
  Weight: 91 kg

DRUGS (5)
  1. VIOXX [Suspect]
     Indication: INFLAMMATION
     Route: 048
     Dates: start: 20000224, end: 20000228
  2. LORTAB [Concomitant]
     Route: 065
  3. ZANTAC [Concomitant]
     Route: 065
  4. ULTRAM [Concomitant]
     Route: 065
  5. SKELAXIN [Concomitant]
     Route: 065

REACTIONS (4)
  - CARDIAC DISORDER [None]
  - DEPRESSION [None]
  - MYOCARDIAL INFARCTION [None]
  - THROMBOSIS [None]
